FAERS Safety Report 6907155-5 (Version None)
Quarter: 2010Q3

REPORT INFORMATION
  Report Type: 
  Country: None (occurrence: None)
  Receive Date: 20100804
  Receipt Date: 20090824
  Transmission Date: 20110219
  Serious: No
  Sender: FDA-Public Use
  Company Number: US-PFIZER INC-2008013111

PATIENT
  Sex: Female
  Weight: 81.7 kg

DRUGS (10)
  1. NARDIL [Suspect]
  2. KLONOPIN [Suspect]
  3. ACETAMINOPHEN [Concomitant]
  4. SYNTHROID [Concomitant]
  5. MUCINEX [Concomitant]
     Indication: ASTHMA
  6. ADVAIR DISKUS 100/50 [Concomitant]
  7. MAXAIR [Concomitant]
  8. ATROVENT [Concomitant]
  9. NEXIUM [Concomitant]
     Indication: GASTROOESOPHAGEAL REFLUX DISEASE
  10. ZANTAC [Concomitant]

REACTIONS (13)
  - ANXIETY [None]
  - DIVERTICULITIS [None]
  - DRUG INEFFECTIVE [None]
  - ERYTHEMA [None]
  - FEAR [None]
  - HUNGER [None]
  - HYPERSENSITIVITY [None]
  - INFECTION [None]
  - LABORATORY TEST ABNORMAL [None]
  - MALAISE [None]
  - SOMNOLENCE [None]
  - VIRAL INFECTION [None]
  - VISION BLURRED [None]
